FAERS Safety Report 7918285-3 (Version None)
Quarter: 2011Q4

REPORT INFORMATION
  Report Type: 
  Country: None (occurrence: None)
  Receive Date: 20111116
  Receipt Date: 20111108
  Transmission Date: 20120403
  Serious: Yes (Hospitalization)
  Sender: FDA-Public Use
  Company Number: IT-GLAXOSMITHKLINE-B0762672A

PATIENT
  Sex: Female

DRUGS (4)
  1. ALKERAN [Suspect]
     Indication: MULTIPLE MYELOMA
     Dosage: 2MG PER DAY
     Route: 048
     Dates: start: 20090609, end: 20100222
  2. PREDNISONE TAB [Concomitant]
     Dosage: 50MG PER DAY
     Route: 048
     Dates: start: 20090609, end: 20100222
  3. VELCADE [Suspect]
     Indication: MULTIPLE MYELOMA
     Dosage: 2.2MG PER DAY
     Route: 042
     Dates: start: 20090609, end: 20100222
  4. OSELTAMIVIR PHOSPHATE [Concomitant]
     Route: 065

REACTIONS (2)
  - H1N1 INFLUENZA [None]
  - PYREXIA [None]
